FAERS Safety Report 22295205 (Version 2)
Quarter: 2023Q2

REPORT INFORMATION
  Report Type: Spontaneous
  Country: US (occurrence: US)
  Receive Date: 20230508
  Receipt Date: 20230628
  Transmission Date: 20230721
  Serious: No
  Sender: FDA-Public Use
  Company Number: US-PFIZER INC-202300178323

PATIENT
  Age: 14 Year
  Sex: Female
  Weight: 40 kg

DRUGS (2)
  1. GENOTROPIN [Suspect]
     Active Substance: SOMATROPIN
     Indication: Turner^s syndrome
     Dosage: 2.1 MG (2.1MG ONE DAY THEN 2.2MG THE NEXT DAY, EVERY OTHER DAY AND THEN RESTS ON SUNDAY)
     Dates: start: 202302
  2. GENOTROPIN [Suspect]
     Active Substance: SOMATROPIN
     Dosage: 2.2 MG (2.1MG ONE DAY THEN 2.2MG THE NEXT DAY, EVERY OTHER DAY AND THEN RESTS ON SUNDAY)

REACTIONS (5)
  - Device breakage [Unknown]
  - Device use issue [Unknown]
  - Circumstance or information capable of leading to device use error [Unknown]
  - Drug dose omission by device [Unknown]
  - Off label use [Unknown]

NARRATIVE: CASE EVENT DATE: 20230201
